FAERS Safety Report 9286812 (Version 3)
Quarter: 2013Q3

REPORT INFORMATION
  Report Type: Report from Study
  Country: US (occurrence: US)
  Receive Date: 20130513
  Receipt Date: 20130730
  Transmission Date: 20140515
  Serious: Yes (Death, Hospitalization, Other)
  Sender: FDA-Public Use
  Company Number: US-ALEXION PHARMACEUTICALS INC.-A201301019

PATIENT
  Age: 51 Year
  Sex: Male
  Weight: 48 kg

DRUGS (3)
  1. SOLIRIS [Suspect]
     Indication: HAEMOLYTIC URAEMIC SYNDROME
     Dosage: 900 MG, SINGLE
     Route: 042
     Dates: start: 20130423, end: 20130423
  2. PROGRAF [Concomitant]
     Dosage: UNK
     Dates: end: 20130414
  3. CELLCEPT [Concomitant]
     Dosage: UNK
     Dates: end: 20130424

REACTIONS (2)
  - Intestinal ischaemia [Fatal]
  - Sepsis [Recovered/Resolved]
